FAERS Safety Report 7394023 (Version 3)
Quarter: 2014Q1

REPORT INFORMATION
  Report Type: Spontaneous
  Country: US (occurrence: US)
  Receive Date: 20100520
  Receipt Date: 20140102
  Transmission Date: 20141002
  Serious: Yes (Hospitalization, Other)
  Sender: FDA-Public Use
  Company Number: US-BAYER-201022763NA

PATIENT
  Age: 23 Year
  Sex: Female
  Weight: 82 kg

DRUGS (23)
  1. YAZ [Suspect]
     Indication: CONTRACEPTION
     Route: 048
     Dates: start: 200701, end: 200707
  2. YASMIN [Suspect]
     Indication: CONTRACEPTION
     Dates: start: 200707, end: 200804
  3. AMITRIPTYLINE [Concomitant]
     Indication: HEADACHE
     Dosage: 10 MG (DAILY DOSE), QD,
  4. AMITRIPTYLINE [Concomitant]
     Indication: DEPRESSION
  5. GABAPENTIN [Concomitant]
     Indication: PAIN
  6. ALEVE [Concomitant]
  7. IBUPROFEN [Concomitant]
  8. TYLENOL [Concomitant]
  9. FIORICET [Concomitant]
  10. NEURONTIN [Concomitant]
     Indication: SLEEP DISORDER
     Dosage: 300 MG (DAILY DOSE), ,
  11. ZITHROMAX [Concomitant]
  12. ALBUTEROL [Concomitant]
  13. ACIPHEX [Concomitant]
  14. PROTON PUMP INHIBITORS [Concomitant]
  15. PREVACID [Concomitant]
  16. TOPAMAX [Concomitant]
     Dosage: AT BEDTIME
  17. ZOMIG [Concomitant]
  18. TORADOL [Concomitant]
  19. TRIPTAN [Concomitant]
  20. HYDROXYZINE [Concomitant]
     Indication: ANXIETY
  21. ANTACIDS [Concomitant]
  22. PROTON PUMP INHIBITORS [Concomitant]
  23. FLUTICASONE [Concomitant]
     Dosage: 50 MCG/L, UNK

REACTIONS (8)
  - Gallbladder cholesterolosis [Unknown]
  - Cholecystitis chronic [None]
  - Peptic ulcer [None]
  - Oesophagitis [None]
  - Gastritis [None]
  - Abdominal pain [Unknown]
  - Abdominal pain upper [Unknown]
  - Dyspepsia [None]
